FAERS Safety Report 23878475 (Version 1)
Quarter: 2024Q2

REPORT INFORMATION
  Report Type: Report from Study
  Country: GB (occurrence: GB)
  Receive Date: 20240521
  Receipt Date: 20240521
  Transmission Date: 20240716
  Serious: Yes (Disabling)
  Sender: FDA-Public Use
  Company Number: GB-Merck Healthcare KGaA-2024026494

PATIENT
  Sex: Female

DRUGS (1)
  1. MAVENCLAD [Suspect]
     Active Substance: CLADRIBINE
     Indication: Multiple sclerosis
     Dosage: YEAR ONE WEEK ONE THERAPY: PRESCRIBED DOSE OF 2 TABLETS ON DAYS 1 TO 3 AND 1 TABLET ON DAYS 4 TO 5
     Route: 048
     Dates: start: 20240513

REACTIONS (1)
  - Musculoskeletal disorder [Unknown]
